FAERS Safety Report 20320827 (Version 2)
Quarter: 2022Q1

REPORT INFORMATION
  Report Type: Spontaneous
  Country: None (occurrence: US)
  Receive Date: 20220111
  Receipt Date: 20220216
  Transmission Date: 20220424
  Serious: No
  Sender: FDA-Public Use
  Company Number: US-Ajanta Pharma USA Inc.-2123793

PATIENT
  Age: 63 Year
  Sex: Female
  Weight: 63.636 kg

DRUGS (1)
  1. CHOLESTYRAMINE [Suspect]
     Active Substance: CHOLESTYRAMINE
     Indication: Functional gastrointestinal disorder
     Route: 048
     Dates: start: 202112

REACTIONS (7)
  - Product solubility abnormal [Not Recovered/Not Resolved]
  - Product use complaint [Not Recovered/Not Resolved]
  - Abdominal discomfort [Not Recovered/Not Resolved]
  - Nausea [Not Recovered/Not Resolved]
  - Vomiting [Not Recovered/Not Resolved]
  - Product substitution issue [Not Recovered/Not Resolved]
  - Off label use [Not Recovered/Not Resolved]

NARRATIVE: CASE EVENT DATE: 20211201
